FAERS Safety Report 10475137 (Version 1)
Quarter: 2014Q3

REPORT INFORMATION
  Report Type: Spontaneous
  Country: US (occurrence: None)
  Receive Date: 20140924
  Receipt Date: 20140924
  Transmission Date: 20150326
  Serious: Yes (Hospitalization)
  Sender: FDA-Public Use
  Company Number: None

PATIENT
  Age: 79 Year
  Sex: Male
  Weight: 97.3 kg

DRUGS (9)
  1. SOFOSBUVIR [Suspect]
     Active Substance: SOFOSBUVIR
     Indication: HEPATITIS C
     Route: 048
     Dates: start: 20140429
  2. ZINC [Concomitant]
     Active Substance: ZINC\ZINC CHLORIDE
  3. ARGININE [Concomitant]
     Active Substance: ARGININE
  4. FISH OIL [Concomitant]
     Active Substance: FISH OIL
  5. NOVOLOG [Concomitant]
     Active Substance: INSULIN ASPART
  6. RIBAVIRIN. [Suspect]
     Active Substance: RIBAVIRIN
     Indication: HEPATITIS C
     Route: 048
     Dates: start: 20140429
  7. ASPIRIN. [Concomitant]
     Active Substance: ASPIRIN
  8. AZOR [Concomitant]
     Active Substance: AMLODIPINE BESYLATE\OLMESARTAN MEDOXOMIL
  9. SPIRIVA [Concomitant]
     Active Substance: TIOTROPIUM BROMIDE MONOHYDRATE

REACTIONS (1)
  - Stent placement [None]

NARRATIVE: CASE EVENT DATE: 201405
